FAERS Safety Report 16717742 (Version 1)
Quarter: 2019Q3

REPORT INFORMATION
  Report Type: Spontaneous
  Country: DE (occurrence: DE)
  Receive Date: 20190819
  Receipt Date: 20190819
  Transmission Date: 20191005
  Serious: Yes (Other)
  Sender: FDA-Public Use
  Company Number: PHHY2019DE188519

PATIENT
  Age: 78 Year
  Sex: Male
  Weight: 65 kg

DRUGS (24)
  1. PREDNISONE. [Suspect]
     Active Substance: PREDNISONE
     Dosage: 1ST LINE THERAPY, ACCORDING TO R-CHOP REGIMEN, 6 CYCLES
     Route: 065
     Dates: start: 201812
  2. VINCRISTINE [Suspect]
     Active Substance: VINCRISTINE
     Dosage: 2ND LINE THERAPY, ACCORDING TO R-GEMOX REGIMEN, 1 CYCLE
     Route: 065
     Dates: start: 201812
  3. MABTHERA [Suspect]
     Active Substance: RITUXIMAB
     Dosage: 1ST LINE THERAPY, ACCORDING TO R-CHOP REGIMEN, 6 CYCLES
     Route: 065
  4. IFOSFAMIDE. [Suspect]
     Active Substance: IFOSFAMIDE
     Dosage: UNK
     Route: 065
     Dates: start: 201905
  5. CYCLOPHOSPHAMIDE. [Suspect]
     Active Substance: CYCLOPHOSPHAMIDE
     Indication: DIFFUSE LARGE B-CELL LYMPHOMA
     Dosage: 1ST LINE THERAPY, ACCORDING TO R-CHOP REGIMEN, 6 CYCLES
     Route: 065
     Dates: start: 201810
  6. CYCLOPHOSPHAMIDE. [Suspect]
     Active Substance: CYCLOPHOSPHAMIDE
     Dosage: 1ST LINE THERAPY, ACCORDING TO R-CHOP REGIMEN, 6 CYCLES
     Route: 065
     Dates: start: 201812
  7. VINCRISTINE [Suspect]
     Active Substance: VINCRISTINE
     Indication: DIFFUSE LARGE B-CELL LYMPHOMA
     Dosage: 2ND LINE THERAPY, ACCORDING TO R-GEMOX REGIMEN, 1 CYCLE
     Route: 065
     Dates: start: 201810
  8. OXALIPLATIN. [Suspect]
     Active Substance: OXALIPLATIN
     Dosage: UNK
     Route: 065
     Dates: start: 201904
  9. PIXANTRONE [Suspect]
     Active Substance: PIXANTRONE
     Dosage: FURTHER LINE THERAPY, ACCORDING TO R-PIXANTRONE REGIMEN, 1 CYCLE
     Route: 065
     Dates: start: 201905
  10. PREDNISONE. [Suspect]
     Active Substance: PREDNISONE
     Indication: DIFFUSE LARGE B-CELL LYMPHOMA
     Dosage: 1ST LINE THERAPY, ACCORDING TO R-CHOP REGIMEN, 6 CYCLES
     Route: 065
     Dates: start: 201810
  11. CARBOPLATIN. [Suspect]
     Active Substance: CARBOPLATIN
     Indication: DIFFUSE LARGE B-CELL LYMPHOMA
     Dosage: UNK
     Route: 065
     Dates: start: 201905
  12. DOXORUBICIN [Suspect]
     Active Substance: DOXORUBICIN
     Indication: DIFFUSE LARGE B-CELL LYMPHOMA
     Dosage: 1ST LINE THERAPY, ACCORDING TO R-CHOP REGIMEN, 6 CYCLES
     Route: 065
     Dates: start: 201810
  13. ETOPOSIDE. [Suspect]
     Active Substance: ETOPOSIDE
     Dosage: FURTHER LINE THERAPY, ACCORDING TO R-ICE REGIMEN, 1 CYCLE
     Route: 065
     Dates: start: 201905
  14. GEMCITABINE. [Suspect]
     Active Substance: GEMCITABINE
     Dosage: FURTHER LINE THERAPY, ACCORDING TO R-ICE REGIMEN, 1 CYCLE
     Route: 065
     Dates: start: 201904
  15. MABTHERA [Suspect]
     Active Substance: RITUXIMAB
     Indication: DIFFUSE LARGE B-CELL LYMPHOMA
     Dosage: 2ND LINE THERAPY, ACCORDING TO R-GEMOX THERAPY, 1 CYCLE
     Route: 065
  16. MABTHERA [Suspect]
     Active Substance: RITUXIMAB
     Dosage: FURTHER LINE THERAPY, ACCORDING TO R-ICE REGIMEN, 1 CYCLE
     Route: 065
  17. IFOSFAMIDE. [Suspect]
     Active Substance: IFOSFAMIDE
     Indication: DIFFUSE LARGE B-CELL LYMPHOMA
     Dosage: UNK
     Route: 065
     Dates: start: 201905
  18. GEMCITABINE. [Suspect]
     Active Substance: GEMCITABINE
     Indication: DIFFUSE LARGE B-CELL LYMPHOMA
     Dosage: FURTHER LINE THERAPY, ACCORDING TO R-ICE REGIMEN, 1 CYCLE
     Route: 065
     Dates: start: 201904
  19. CARBOPLATIN. [Suspect]
     Active Substance: CARBOPLATIN
     Dosage: UNK
     Route: 065
     Dates: start: 201905
  20. OXALIPLATIN. [Suspect]
     Active Substance: OXALIPLATIN
     Indication: DIFFUSE LARGE B-CELL LYMPHOMA
     Dosage: UNK
     Route: 065
     Dates: start: 201904
  21. MABTHERA [Suspect]
     Active Substance: RITUXIMAB
     Dosage: FURTHER LINE THERAPY, ACCORDING TO R-PIXANTRONE REGIMEN, 1 CYCLE
     Route: 065
  22. DOXORUBICIN [Suspect]
     Active Substance: DOXORUBICIN
     Dosage: 1ST LINE THERAPY, ACCORDING TO R-CHOP REGIMEN, 6 CYCLES
     Route: 065
     Dates: start: 201812
  23. ETOPOSIDE. [Suspect]
     Active Substance: ETOPOSIDE
     Indication: DIFFUSE LARGE B-CELL LYMPHOMA
     Dosage: FURTHER LINE THERAPY, ACCORDING TO R-ICE REGIMEN, 1 CYCLE
     Route: 065
     Dates: start: 201905
  24. PIXANTRONE [Suspect]
     Active Substance: PIXANTRONE
     Indication: DIFFUSE LARGE B-CELL LYMPHOMA
     Dosage: FURTHER LINE THERAPY, ACCORDING TO R-PIXANTRONE REGIMEN, 1 CYCLE
     Route: 065
     Dates: start: 201905

REACTIONS (3)
  - Platelet count decreased [Recovering/Resolving]
  - Infection [Unknown]
  - Neurotoxicity [Unknown]

NARRATIVE: CASE EVENT DATE: 201905
